FAERS Safety Report 18614701 (Version 2)
Quarter: 2020Q4

REPORT INFORMATION
  Report Type: Spontaneous
  Country: SI (occurrence: SI)
  Receive Date: 20201215
  Receipt Date: 20201224
  Transmission Date: 20210114
  Serious: Yes (Hospitalization, Other)
  Sender: FDA-Public Use
  Company Number: NVSC2020SI331626

PATIENT
  Age: 82 Year
  Sex: Female

DRUGS (1)
  1. IBUPROFEN. [Suspect]
     Active Substance: IBUPROFEN
     Indication: PRODUCT USED FOR UNKNOWN INDICATION
     Dosage: 60 TABLETS OF 400 MG (IN TOTAL 24G) (TABLET)
     Route: 048

REACTIONS (5)
  - Suicide attempt [Unknown]
  - Vomiting [Unknown]
  - Overdose [Unknown]
  - Abdominal pain upper [Unknown]
  - Renal impairment [Unknown]
